FAERS Safety Report 23197583 (Version 1)
Quarter: 2023Q4

REPORT INFORMATION
  Report Type: Spontaneous
  Country: CN (occurrence: CN)
  Receive Date: 20231117
  Receipt Date: 20231117
  Transmission Date: 20240110
  Serious: Yes (Other)
  Sender: FDA-Public Use
  Company Number: CN-FreseniusKabi-FK202318273

PATIENT
  Age: 58 Year
  Sex: Female

DRUGS (4)
  1. EGG PHOSPHOLIPIDS\GLYCERIN\MEDIUM-CHAIN TRIGLYCERIDES\SOYBEAN OIL [Suspect]
     Active Substance: EGG PHOSPHOLIPIDS\GLYCERIN\MEDIUM-CHAIN TRIGLYCERIDES\SOYBEAN OIL
     Indication: Intestinal obstruction
     Route: 041
     Dates: start: 20231101, end: 20231101
  2. EGG PHOSPHOLIPIDS\GLYCERIN\MEDIUM-CHAIN TRIGLYCERIDES\SOYBEAN OIL [Suspect]
     Active Substance: EGG PHOSPHOLIPIDS\GLYCERIN\MEDIUM-CHAIN TRIGLYCERIDES\SOYBEAN OIL
     Indication: Nutritional supplementation
  3. Levofloxacin Hydrochloride and Sodium Chloride Injection [Concomitant]
     Indication: Intestinal obstruction
     Route: 041
     Dates: start: 20231101, end: 20231101
  4. Levofloxacin Hydrochloride and Sodium Chloride Injection [Concomitant]
     Indication: Anti-infective therapy

REACTIONS (3)
  - Seizure [Recovering/Resolving]
  - Pain in extremity [Recovering/Resolving]
  - Chills [Recovering/Resolving]

NARRATIVE: CASE EVENT DATE: 20231101
